FAERS Safety Report 13557995 (Version 1)
Quarter: 2017Q2

REPORT INFORMATION
  Report Type: Spontaneous
  Country: US (occurrence: US)
  Receive Date: 20170517
  Receipt Date: 20170517
  Transmission Date: 20170830
  Serious: No
  Sender: FDA-Public Use
  Company Number: None

PATIENT
  Age: 50 Year
  Sex: Male

DRUGS (1)
  1. ZEPATIER [Suspect]
     Active Substance: ELBASVIR\GRAZOPREVIR
     Dosage: 1 TABLET QD ORAL
     Route: 048

REACTIONS (3)
  - Drug dose omission [None]
  - Somnolence [None]
  - Memory impairment [None]

NARRATIVE: CASE EVENT DATE: 20170510
